FAERS Safety Report 9031443 (Version 2)
Quarter: 2013Q2

REPORT INFORMATION
  Report Type: Spontaneous
  Country: US (occurrence: US)
  Receive Date: 20130124
  Receipt Date: 20130425
  Transmission Date: 20140414
  Serious: No
  Sender: FDA-Public Use
  Company Number: US-009507513-1301USA008243

PATIENT
  Age: 38 Year
  Sex: Female

DRUGS (2)
  1. NUVARING [Suspect]
     Indication: CONTRACEPTION
     Dosage: 3 WEEKS IN 1 WEEK OUT
     Route: 067
     Dates: start: 201001
  2. NUVARING [Suspect]
     Dosage: UNK
     Dates: start: 20130109, end: 2013

REACTIONS (7)
  - Abdominal pain [Unknown]
  - Metrorrhagia [Unknown]
  - Product physical issue [Unknown]
  - Metrorrhagia [Recovered/Resolved]
  - Back pain [Unknown]
  - Pain in extremity [Unknown]
  - Hypoaesthesia [Unknown]
